FAERS Safety Report 7878861-3 (Version None)
Quarter: 2011Q4

REPORT INFORMATION
  Report Type: 
  Country: None (occurrence: None)
  Receive Date: 20111024
  Receipt Date: 20110701
  Transmission Date: 20120403
  Serious: Yes (Other)
  Sender: FDA-Public Use
  Company Number: AMAG201100150

PATIENT
  Age: 68 Year
  Sex: Female
  Weight: 95.3 kg

DRUGS (6)
  1. JANUMET [Concomitant]
  2. LISINOPRIL (LISINOPRIL DIHYDRATE) [Concomitant]
  3. VITAMIN D [Concomitant]
  4. FERAHEME [Suspect]
     Indication: IRON DEFICIENCY ANAEMIA
     Dosage: 510 MG, SINGLE, INTRAVENOUS
     Route: 042
     Dates: start: 20110601, end: 20110601
  5. SIMVASTATIN [Concomitant]
  6. METHOTREXATE [Concomitant]

REACTIONS (7)
  - BLOOD PRESSURE INCREASED [None]
  - HEART RATE DECREASED [None]
  - MALAISE [None]
  - INFLUENZA [None]
  - NAUSEA [None]
  - BLOOD PRESSURE DECREASED [None]
  - HYPERSENSITIVITY [None]
